FAERS Safety Report 26035515 (Version 1)
Quarter: 2025Q4

REPORT INFORMATION
  Report Type: Report from Study
  Country: US (occurrence: US)
  Receive Date: 20251112
  Receipt Date: 20251112
  Transmission Date: 20260117
  Serious: Yes (Other)
  Sender: TAKEDA
  Company Number: US-TAKEDA-2025TUS098945

PATIENT
  Age: 86 Year
  Sex: Female

DRUGS (1)
  1. VEDOLIZUMAB [Suspect]
     Active Substance: VEDOLIZUMAB
     Indication: Product used for unknown indication
     Dosage: 300 MILLIGRAM

REACTIONS (21)
  - Cataract [Unknown]
  - Pancreatic duct dilatation [Unknown]
  - Faecal volume decreased [Unknown]
  - Faeces soft [Unknown]
  - Defaecation urgency [Unknown]
  - Diverticulum intestinal [Unknown]
  - Renal cyst [Unknown]
  - Hiatus hernia [Unknown]
  - Gastritis [Unknown]
  - Amnesia [Unknown]
  - Confusional state [Unknown]
  - Hypoaesthesia [Unknown]
  - Eye irritation [Unknown]
  - Increased tendency to bruise [Unknown]
  - Multiple allergies [Unknown]
  - Arteriosclerosis [Unknown]
  - Paraesthesia [Unknown]
  - Constipation [Unknown]
  - Arthralgia [Unknown]
  - Cough [Unknown]
  - Fatigue [Unknown]
